FAERS Safety Report 9470075 (Version 1)
Quarter: 2013Q3

REPORT INFORMATION
  Report Type: Spontaneous
  Country: US (occurrence: US)
  Receive Date: 20130822
  Receipt Date: 20130822
  Transmission Date: 20140515
  Serious: Yes (Life-Threatening, Other)
  Sender: FDA-Public Use
  Company Number: US-SHIRE-ALL1-2013-05567

PATIENT
  Age: 55 Year
  Sex: Male

DRUGS (1)
  1. FOSRENOL [Suspect]
     Indication: HYPERPHOSPHATAEMIA
     Dosage: UNK, UNKNOWN
     Route: 048

REACTIONS (5)
  - Cardio-respiratory arrest [Recovered/Resolved]
  - Abdominal pain [Unknown]
  - Medication residue present [Unknown]
  - X-ray gastrointestinal tract abnormal [Unknown]
  - Wrong technique in drug usage process [Unknown]
